FAERS Safety Report 8670030 (Version 3)
Quarter: 2012Q4

REPORT INFORMATION
  Report Type: 
  Country: JP (occurrence: JP)
  Receive Date: 20120718
  Receipt Date: 20120907
  Transmission Date: 20130627
  Serious: Yes (Other)
  Sender: FDA-Public Use
  Company Number: JP-ASTRAZENECA-2012SE48491

PATIENT
  Age: 80 Month
  Sex: Female
  Weight: 37 kg

DRUGS (6)
  1. NEXIUM [Suspect]
     Indication: GASTROOESOPHAGEAL REFLUX DISEASE
     Route: 048
     Dates: start: 201203, end: 20120614
  2. BENET [Concomitant]
     Indication: OSTEOPOROSIS
     Route: 048
  3. BIO-THREE [Concomitant]
     Route: 048
  4. RIZE [Concomitant]
     Indication: INSOMNIA
     Route: 048
  5. ONEALFA [Concomitant]
     Indication: OSTEOPOROSIS
     Route: 048
  6. MEVALOTIN [Concomitant]
     Indication: HYPERLIPIDAEMIA
     Route: 048

REACTIONS (5)
  - Decreased appetite [Recovered/Resolved]
  - Pruritus generalised [Recovered/Resolved]
  - Diarrhoea [Recovered/Resolved]
  - Hepatic enzyme increased [Recovered/Resolved]
  - Malaise [Recovered/Resolved]
